FAERS Safety Report 5319918-0 (Version None)
Quarter: 2007Q2

REPORT INFORMATION
  Report Type: 
  Country: None (occurrence: None)
  Receive Date: 20070503
  Receipt Date: 20070425
  Transmission Date: 20071010
  Serious: Yes (Hospitalization)
  Sender: FDA-Public Use
  Company Number: WAES 0704USA05787

PATIENT
  Age: 8 Year
  Sex: Female

DRUGS (2)
  1. DECADRON [Suspect]
     Dosage: PO
     Route: 048
  2. INFUSION (FORM) IXABEPILONE 8 MG/M[2] [Suspect]
     Indication: NEUROBLASTOMA
     Dosage: IV
     Route: 042
     Dates: start: 20070115

REACTIONS (3)
  - ABDOMINAL PAIN [None]
  - HYPERGLYCAEMIA [None]
  - HYPERTENSION [None]
